FAERS Safety Report 16280901 (Version 1)
Quarter: 2019Q2

REPORT INFORMATION
  Report Type: Other
  Country: CA (occurrence: CA)
  Receive Date: 20190507
  Receipt Date: 20190507
  Transmission Date: 20190711
  Serious: Yes (Other)
  Sender: FDA-Public Use
  Company Number: CA-APOTEX-2019AP013096

PATIENT
  Sex: Female

DRUGS (1)
  1. LETROZOLE. [Suspect]
     Active Substance: LETROZOLE
     Indication: BREAST CANCER METASTATIC
     Dosage: 2.5 MG, UNK
     Route: 048

REACTIONS (7)
  - Obstruction gastric [Unknown]
  - Breast cancer recurrent [Unknown]
  - Ascites [Unknown]
  - Feeding disorder [Unknown]
  - Lymphadenopathy [Unknown]
  - Weight decreased [Unknown]
  - Metastases to stomach [Unknown]
